FAERS Safety Report 4411357-X (Version None)
Quarter: 2004Q3

REPORT INFORMATION
  Report Type: 
  Country: None (occurrence: None)
  Receive Date: 20040727
  Receipt Date: 20040713
  Transmission Date: 20050211
  Serious: Yes (Life-Threatening, Hospitalization, Other)
  Sender: FDA-Public Use
  Company Number: ES-2004-028595

PATIENT
  Age: 69 Year
  Sex: Male

DRUGS (2)
  1. ULTRAVIST / CLAROGRAF 300 (IOPROMIDE) INFUSION [Suspect]
     Dosage: 100 ML, 1 DOSE, INTRAVENOUS
     Route: 042
     Dates: start: 20040526, end: 20040526
  2. ULTRAVIST / CLAROGRAF 300 (IOPROMIDE) INFUSION [Suspect]

REACTIONS (3)
  - CARDIO-RESPIRATORY ARREST [None]
  - CONVULSION [None]
  - HYPERSENSITIVITY [None]
